FAERS Safety Report 9507870 (Version 1)
Quarter: 2013Q3

REPORT INFORMATION
  Report Type: Spontaneous
  Country: DE (occurrence: DE)
  Receive Date: 20130909
  Receipt Date: 20130909
  Transmission Date: 20140515
  Serious: Yes (Life-Threatening, Hospitalization)
  Sender: FDA-Public Use
  Company Number: DE-PFIZER INC-2013254047

PATIENT
  Sex: Male
  Weight: 80 kg

DRUGS (5)
  1. VANCOMYCIN [Suspect]
     Indication: SEPSIS
     Dosage: 1 G, 3X/DAY
     Route: 042
  2. TAZOBAC [Concomitant]
     Indication: RESPIRATORY FAILURE
     Dosage: 4.5 G, 3X/DAY
     Route: 042
  3. IMIPENEM [Concomitant]
     Indication: RESPIRATORY FAILURE
     Dosage: 1 G, 3X/DAY
     Route: 042
  4. DOXYCYCLINE [Concomitant]
     Dosage: 100 MG, 2X/DAY
     Route: 042
  5. PANTOZOL [Concomitant]
     Indication: PROPHYLAXIS
     Dosage: 40 MG, UNK
     Route: 042

REACTIONS (2)
  - Gastrointestinal haemorrhage [Not Recovered/Not Resolved]
  - Thrombocytopenia [Not Recovered/Not Resolved]
